FAERS Safety Report 8970512 (Version 1)
Quarter: 2012Q4

REPORT INFORMATION
  Report Type: 
  Country: US (occurrence: US)
  Receive Date: 20121218
  Receipt Date: 20121218
  Transmission Date: 20130627
  Serious: No
  Sender: FDA-Public Use
  Company Number: US-BRISTOL-MYERS SQUIBB COMPANY-16502981

PATIENT
  Age: 68 Year
  Sex: Female

DRUGS (12)
  1. ABILIFY [Suspect]
  2. LUNESTA [Suspect]
     Indication: INSOMNIA
     Route: 048
     Dates: start: 20111103, end: 20111104
  3. ESTAZOLAM [Concomitant]
     Dates: start: 201111
  4. OMNARIS [Concomitant]
     Route: 045
     Dates: start: 20111010
  5. PAXIL [Concomitant]
  6. HYDROCHLOROTHIAZIDE [Concomitant]
  7. XANAX [Concomitant]
  8. VESICARE [Concomitant]
  9. GARLIC [Concomitant]
  10. VITAMIN B12 [Concomitant]
  11. VITAMIN C [Concomitant]
  12. CHLOR-TAB [Concomitant]

REACTIONS (2)
  - Akathisia [Recovered/Resolved]
  - Middle insomnia [Unknown]
